FAERS Safety Report 8599027-8 (Version None)
Quarter: 2012Q3

REPORT INFORMATION
  Report Type: 
  Country: None (occurrence: None)
  Receive Date: 20120816
  Receipt Date: 20120807
  Transmission Date: 20120928
  Serious: No
  Sender: FDA-Public Use
  Company Number: US-ASTRAZENECA-2012SE55734

PATIENT
  Sex: Female
  Weight: 60.3 kg

DRUGS (2)
  1. CAMPRAL [Concomitant]
  2. SEROQUEL [Suspect]
     Indication: BIPOLAR DISORDER
     Route: 048

REACTIONS (6)
  - ULCER [None]
  - SLEEP DISORDER [None]
  - DRUG DOSE OMISSION [None]
  - ABDOMINAL DISTENSION [None]
  - LUNG NEOPLASM [None]
  - HEPATITIS C [None]
